FAERS Safety Report 9917869 (Version 2)
Quarter: 2014Q1

REPORT INFORMATION
  Report Type: Spontaneous
  Country: US (occurrence: US)
  Receive Date: 20140221
  Receipt Date: 20140221
  Transmission Date: 20141002
  Serious: Yes (Other)
  Sender: FDA-Public Use
  Company Number: US-GE HEALTHCARE MEDICAL DIAGNOSTICS-OSCN-PR-0902S-0096

PATIENT
  Age: 73 Year
  Sex: Male

DRUGS (6)
  1. OMNISCAN [Suspect]
     Indication: PRODUCT USED FOR UNKNOWN INDICATION
     Route: 042
     Dates: start: 20010523, end: 20010523
  2. OMNISCAN [Suspect]
     Indication: PRODUCT USED FOR UNKNOWN INDICATION
     Route: 042
     Dates: start: 20041206, end: 20041206
  3. OMNISCAN [Suspect]
     Indication: DIPLOPIA
     Dates: start: 20060414, end: 20060414
  4. MAGNEVIST [Suspect]
     Indication: BACK PAIN
     Route: 042
     Dates: start: 20050804, end: 20050804
  5. SODIUM THIOSULFATE [Concomitant]
     Route: 042
     Dates: start: 20081113
  6. PREDNISONE [Concomitant]

REACTIONS (1)
  - Nephrogenic systemic fibrosis [Not Recovered/Not Resolved]
